FAERS Safety Report 5124834-3 (Version None)
Quarter: 2006Q4

REPORT INFORMATION
  Report Type: 
  Country: None (occurrence: None)
  Receive Date: 20061006
  Receipt Date: 20060927
  Transmission Date: 20070319
  Serious: Yes (Hospitalization)
  Sender: FDA-Public Use
  Company Number: 2006116461

PATIENT
  Age: 44 Year
  Sex: Female

DRUGS (1)
  1. ZOLOFT [Suspect]
     Indication: DEPRESSION

REACTIONS (3)
  - ABDOMINAL PAIN UPPER [None]
  - CHEST DISCOMFORT [None]
  - HYPERCHLORHYDRIA [None]
